FAERS Safety Report 7012638-6 (Version None)
Quarter: 2010Q3

REPORT INFORMATION
  Report Type: 
  Country: None (occurrence: None)
  Receive Date: 20100924
  Receipt Date: 20100914
  Transmission Date: 20110219
  Serious: Yes (Other)
  Sender: FDA-Public Use
  Company Number: BR-JNJFOC-20100905807

PATIENT
  Age: 23 Year
  Sex: Female

DRUGS (6)
  1. INFLIXIMAB, RECOMBINANT [Suspect]
     Indication: COLITIS
     Route: 042
  2. INFLIXIMAB, RECOMBINANT [Suspect]
     Dosage: AT WEEKS 0, 2 AND 6
     Route: 042
  3. SULFASALAZINE [Concomitant]
     Indication: COLITIS
  4. PREDNISONE TAB [Concomitant]
     Indication: COLITIS
  5. AZATHIOPRINE [Concomitant]
     Indication: COLITIS
  6. GLUCOCORTICOIDS [Concomitant]
     Indication: COLITIS
     Route: 042

REACTIONS (9)
  - ABDOMINAL PAIN [None]
  - ARTHRALGIA [None]
  - DIARRHOEA HAEMORRHAGIC [None]
  - DRUG EXPOSURE DURING PREGNANCY [None]
  - ERYTHEMA [None]
  - INFUSION RELATED REACTION [None]
  - PYODERMA GANGRENOSUM [None]
  - RESPIRATORY DISORDER [None]
  - TACHYCARDIA [None]
